FAERS Safety Report 5241419-9 (Version None)
Quarter: 2007Q1

REPORT INFORMATION
  Report Type: 
  Country: None (occurrence: None)
  Receive Date: 20070212
  Receipt Date: 20070212
  Transmission Date: 20070707
  Serious: Yes (Death)
  Sender: FDA-Public Use
  Company Number: None

PATIENT
  Age: 23 Year
  Sex: Male
  Weight: 72.5755 kg

DRUGS (1)
  1. EFFEXOR [Suspect]

REACTIONS (1)
  - COMPLETED SUICIDE [None]
